FAERS Safety Report 23678775 (Version 1)
Quarter: 2024Q1

REPORT INFORMATION
  Report Type: Spontaneous
  Country: ES (occurrence: ES)
  Receive Date: 20240327
  Receipt Date: 20240327
  Transmission Date: 20240410
  Serious: Yes (Other)
  Sender: FDA-Public Use
  Company Number: None

PATIENT

DRUGS (6)
  1. XCOPRI [Suspect]
     Active Substance: CENOBAMATE
     Indication: Epilepsy
     Dosage: 1.0 COMP CE
     Route: 048
     Dates: start: 20240220
  2. DIAZEPAM [Concomitant]
     Active Substance: DIAZEPAM
     Indication: Neck pain
     Dosage: 5.0 MG CE
     Route: 048
     Dates: start: 20240110
  3. PARACETAMOL RATIO [Concomitant]
     Indication: Torticollis
     Dosage: 1.0 G C/24 H
     Route: 048
     Dates: start: 20200221
  4. VIMPAT [Concomitant]
     Active Substance: LACOSAMIDE
     Indication: Epilepsy
     Dosage: 100.0 MG DE
     Route: 048
     Dates: start: 20210610
  5. RIVOTRIL [Concomitant]
     Active Substance: CLONAZEPAM
     Indication: Epilepsy
     Dosage: 0.5 MG C/24 H NOC
     Route: 048
     Dates: start: 20160708
  6. VIMPAT [Concomitant]
     Active Substance: LACOSAMIDE
     Indication: Epilepsy
     Dosage: 200.0 MG CE
     Route: 048
     Dates: start: 20210609

REACTIONS (2)
  - Hemiparesis [Recovered/Resolved]
  - Dysarthria [Recovered/Resolved]

NARRATIVE: CASE EVENT DATE: 20240221
